FAERS Safety Report 4682830-4 (Version None)
Quarter: 2005Q2

REPORT INFORMATION
  Report Type: 
  Country: None (occurrence: None)
  Receive Date: 20050602
  Receipt Date: 20050422
  Transmission Date: 20051028
  Serious: No
  Sender: FDA-Public Use
  Company Number: USA050496384

PATIENT
  Age: 68 Year
  Sex: Female
  Weight: 101 kg

DRUGS (10)
  1. CYMBALTA [Suspect]
     Indication: DEPRESSION
     Dosage: 30 MG DAY
  2. TRIAMTERENE AND HYDROCHLORIAZID [Concomitant]
  3. TOPROL-XL [Concomitant]
  4. IRON [Concomitant]
  5. NORVASC [Concomitant]
  6. ESTROGENS CONJUGATED [Concomitant]
  7. AVAPRO [Concomitant]
  8. AMARYL [Concomitant]
  9. VITAMIN NOS [Concomitant]
  10. ACIPHEX [Concomitant]

REACTIONS (6)
  - DECREASED APPETITE [None]
  - DIARRHOEA [None]
  - FATIGUE [None]
  - NAUSEA [None]
  - SOMNOLENCE [None]
  - YAWNING [None]
